FAERS Safety Report 10063692 (Version 3)
Quarter: 2014Q2

REPORT INFORMATION
  Report Type: Spontaneous
  Country: JP (occurrence: JP)
  Receive Date: 20140407
  Receipt Date: 20140529
  Transmission Date: 20141212
  Serious: No
  Sender: FDA-Public Use
  Company Number: PHHY2013JP155935

PATIENT
  Age: 30 Year
  Sex: Male

DRUGS (3)
  1. TASIGNA [Suspect]
     Indication: CHRONIC MYELOID LEUKAEMIA
     Dosage: 800 MG, DAILY
     Route: 048
     Dates: start: 20130604
  2. TASIGNA [Suspect]
     Dosage: 400 MG, DAILY
     Route: 048
     Dates: start: 20140320, end: 201405
  3. TASIGNA [Suspect]
     Dosage: 600 MG, DAILY
     Dates: start: 201405

REACTIONS (2)
  - Blood bilirubin increased [Recovered/Resolved]
  - Headache [Recovered/Resolved]
